FAERS Safety Report 12652820 (Version 2)
Quarter: 2016Q3

REPORT INFORMATION
  Report Type: Report from Study
  Country: CA (occurrence: CA)
  Receive Date: 20160815
  Receipt Date: 20160902
  Transmission Date: 20161109
  Serious: Yes (Hospitalization, Other)
  Sender: FDA-Public Use
  Company Number: CA-AMGEN-CANSL2016104940

PATIENT
  Age: 72 Year
  Sex: Female

DRUGS (9)
  1. PANTOPRAZOLE MAGNESIUM [Concomitant]
     Active Substance: PANTOPRAZOLE MAGNESIUM
     Dosage: 40 MG, QD
  2. VENTOLIN [Concomitant]
     Active Substance: ALBUTEROL SULFATE
     Dosage: 100 MG, UNK
  3. TEMAZEPAM. [Concomitant]
     Active Substance: TEMAZEPAM
     Dosage: 50 MG, NIGHT
  4. ENBREL [Suspect]
     Active Substance: ETANERCEPT
     Indication: RHEUMATOID ARTHRITIS
     Dosage: 50 MG, UNK
     Route: 065
     Dates: start: 20130304, end: 2016
  5. ALENDRONATE [Concomitant]
     Active Substance: ALENDRONATE SODIUM
     Dosage: 7 MG, QWK
  6. BUSCOPAN [Concomitant]
     Active Substance: BUTYLSCOPOLAMINE BROMIDE
     Dosage: 10 MG, AS NEEDED
  7. TYLENOL [Concomitant]
     Active Substance: ACETAMINOPHEN
     Dosage: UNK
  8. ENBREL [Suspect]
     Active Substance: ETANERCEPT
     Dosage: 50 MG, UNK
     Route: 065
     Dates: start: 2016
  9. CALCIUM [Concomitant]
     Active Substance: CALCIUM
     Dosage: UNK UNK, QWK

REACTIONS (6)
  - Cholelithiasis [Unknown]
  - Oral pain [Not Recovered/Not Resolved]
  - Pancreatic disorder [Unknown]
  - Biliary tract disorder [Unknown]
  - Stress [Not Recovered/Not Resolved]
  - Abdominal infection [Unknown]
